FAERS Safety Report 9408074 (Version 2)
Quarter: 2013Q3

REPORT INFORMATION
  Report Type: Spontaneous
  Country: DE (occurrence: None)
  Receive Date: 20130716
  Receipt Date: 20130726
  Transmission Date: 20140515
  Serious: Yes (Life-Threatening)
  Sender: FDA-Public Use
  Company Number: TPA2013A06667

PATIENT
  Sex: Female

DRUGS (2)
  1. ADENURIC [Suspect]
     Indication: HYPERURICAEMIA
     Route: 048
     Dates: start: 20130701, end: 20130702
  2. CANDESARTAN [Concomitant]

REACTIONS (6)
  - Toxic epidermal necrolysis [None]
  - Bronchitis [None]
  - Diarrhoea [None]
  - Oropharyngeal pain [None]
  - Pain [None]
  - Burning sensation [None]
